FAERS Safety Report 10178342 (Version 2)
Quarter: 2014Q2

REPORT INFORMATION
  Report Type: Spontaneous
  Country: NL (occurrence: NL)
  Receive Date: 20140519
  Receipt Date: 20140519
  Transmission Date: 20141212
  Serious: Yes (Hospitalization)
  Sender: FDA-Public Use
  Company Number: NL-US-EMD SERONO, INC.-7128300

PATIENT
  Age: 35 Year
  Sex: Female
  Weight: 95 kg

DRUGS (4)
  1. REBIF [Suspect]
     Indication: MULTIPLE SCLEROSIS
     Route: 058
     Dates: start: 20120320, end: 20120418
  2. REBIF [Suspect]
     Route: 058
     Dates: start: 20120418
  3. REBIF [Suspect]
     Route: 058
     Dates: start: 201206, end: 20140224
  4. DROSPIRENONE W/ETHINYLESTRADIOL [Concomitant]
     Indication: CONTRACEPTION
     Dosage: ETHINYLESTRADIOL / DROSPIRENON: 30 MCG/3 MG
     Route: 048

REACTIONS (4)
  - Pancreatitis [Not Recovered/Not Resolved]
  - Dizziness [Recovered/Resolved]
  - Paraesthesia [Recovering/Resolving]
  - Chills [Recovering/Resolving]
